FAERS Safety Report 14531884 (Version 1)
Quarter: 2018Q1

REPORT INFORMATION
  Report Type: Spontaneous
  Country: US (occurrence: US)
  Receive Date: 20180214
  Receipt Date: 20180214
  Transmission Date: 20180509
  Serious: Yes (Death)
  Sender: FDA-Public Use
  Company Number: None

PATIENT
  Age: 87 Year
  Sex: Male
  Weight: 92.99 kg

DRUGS (1)
  1. EPOETIN ALFA [Suspect]
     Active Substance: ERYTHROPOIETIN
     Indication: ANAEMIA
     Dosage: 100 ML 3X A WEEK WITH DIALYSIS

REACTIONS (6)
  - Myocardial infarction [None]
  - Device related infection [None]
  - Cerebrovascular accident [None]
  - Thrombosis [None]
  - Heart rate increased [None]
  - Neoplasm malignant [None]

NARRATIVE: CASE EVENT DATE: 20170928
